FAERS Safety Report 16873719 (Version 1)
Quarter: 2019Q4

REPORT INFORMATION
  Report Type: Spontaneous
  Country: ZA (occurrence: ZA)
  Receive Date: 20191001
  Receipt Date: 20191001
  Transmission Date: 20200122
  Serious: Yes (Other)
  Sender: FDA-Public Use
  Company Number: ZA-COLLEGIUM PHARMACEUTICAL, INC.-ZA-2019COL001149

PATIENT
  Age: 36 Year
  Sex: Female

DRUGS (1)
  1. TAPENTADOL [Suspect]
     Active Substance: TAPENTADOL
     Indication: SPINAL FRACTURE
     Dosage: 100 MG, UNK
     Route: 048

REACTIONS (3)
  - Dependence [Unknown]
  - Pruritus [Unknown]
  - Delirium [Unknown]
